FAERS Safety Report 9651931 (Version 1)
Quarter: 2013Q4

REPORT INFORMATION
  Report Type: Spontaneous
  Country: US (occurrence: US)
  Receive Date: 20131029
  Receipt Date: 20131029
  Transmission Date: 20140711
  Serious: No
  Sender: FDA-Public Use
  Company Number: US-ENDO PHARMACEUTICALS INC.-HYAA20120001

PATIENT
  Age: 79 Year
  Sex: Male

DRUGS (1)
  1. HYDROCORTISONE/GLACIAL ACETIC ACID OTIC SOLUTION [Suspect]
     Indication: EAR INFECTION
     Route: 001
     Dates: start: 201203

REACTIONS (3)
  - Wrong technique in drug usage process [Not Recovered/Not Resolved]
  - Drug dispensing error [Not Recovered/Not Resolved]
  - Incorrect dose administered [Recovered/Resolved]
